FAERS Safety Report 9078519 (Version 1)
Quarter: 2013Q1

REPORT INFORMATION
  Report Type: Report from Study
  Country: US (occurrence: US)
  Receive Date: 20130130
  Receipt Date: 20130130
  Transmission Date: 20140127
  Serious: No
  Sender: FDA-Public Use
  Company Number: US-ABBOTT-12P-163-0958916-00

PATIENT
  Sex: Female
  Weight: 77.18 kg

DRUGS (6)
  1. HUMIRA 40 MG/0.8 ML PEN [Suspect]
     Indication: RHEUMATOID ARTHRITIS
     Dosage: ONCE
     Route: 058
     Dates: start: 20120209, end: 20120209
  2. HUMIRA 40 MG/0.8 ML PEN [Suspect]
     Route: 058
  3. SULFASALAZINE [Concomitant]
     Indication: RHEUMATOID ARTHRITIS
     Dosage: 6 TABLETS A DAY
     Route: 048
     Dates: start: 2010
  4. METHOTREXATE [Concomitant]
     Indication: RHEUMATOID ARTHRITIS
     Dosage: 10 TABS WEEKLY
     Route: 048
     Dates: start: 2010
  5. FOLIC ACID [Concomitant]
     Indication: PROPHYLAXIS AGAINST GASTROINTESTINAL ULCER
     Route: 048
     Dates: start: 2010
  6. UNKNOWN MEDICATIONS [Concomitant]
     Indication: HYPERTENSION

REACTIONS (10)
  - Insomnia [Not Recovered/Not Resolved]
  - Protein total increased [Recovering/Resolving]
  - Crying [Recovering/Resolving]
  - Depressed mood [Not Recovered/Not Resolved]
  - Pain [Unknown]
  - Stress [Unknown]
  - Arthralgia [Not Recovered/Not Resolved]
  - Arthralgia [Unknown]
  - Wrong technique in drug usage process [Unknown]
  - Incorrect dose administered [Unknown]
